FAERS Safety Report 8382495-4 (Version None)
Quarter: 2012Q2

REPORT INFORMATION
  Report Type: 
  Country: None (occurrence: None)
  Receive Date: 20120524
  Receipt Date: 20120517
  Transmission Date: 20120825
  Serious: Yes (Other)
  Sender: FDA-Public Use
  Company Number: US-JNJFOC-20120515322

PATIENT
  Sex: Female
  Weight: 58.97 kg

DRUGS (5)
  1. NUCYNTA ER [Suspect]
     Indication: BACK PAIN
     Dosage: AT ^VARIED^ FREQUENCY
     Route: 048
     Dates: start: 20120301, end: 20120101
  2. PERCOCET [Concomitant]
     Indication: PAIN
     Route: 065
  3. NUCYNTA ER [Suspect]
     Dosage: 1-2 TABLETS 4 TIMES AS NEEDED
     Route: 048
     Dates: start: 20120101
  4. IMITREX [Concomitant]
     Indication: MIGRAINE
     Dosage: AS NEEDED
     Route: 048
  5. NUCYNTA ER [Suspect]
     Dosage: EVERY 4-6 HOURS AS NEEDED
     Route: 048
     Dates: start: 20120101

REACTIONS (3)
  - MIGRAINE [None]
  - CONFUSIONAL STATE [None]
  - ANXIETY [None]
